FAERS Safety Report 4590865-5 (Version None)
Quarter: 2005Q1

REPORT INFORMATION
  Report Type: 
  Country: None (occurrence: None)
  Receive Date: 20050225
  Receipt Date: 20040227
  Transmission Date: 20050727
  Serious: No
  Sender: FDA-Public Use
  Company Number: US-GLAXOSMITHKLINE-A0500379A

PATIENT
  Age: 60 Year
  Sex: Female

DRUGS (12)
  1. ZIAGEN [Suspect]
     Indication: HIV INFECTION
     Dosage: 300MG TWICE PER DAY
     Route: 048
     Dates: start: 20030807
  2. TRICOR [Concomitant]
  3. AMARYL [Concomitant]
  4. ZETIA [Concomitant]
     Route: 065
  5. VIDEX [Concomitant]
  6. REYATAZ [Concomitant]
  7. ALLEGRA-D [Concomitant]
  8. COMBIVENT [Concomitant]
  9. ZYPREXA [Concomitant]
  10. ZOLOFT [Concomitant]
  11. ACCUPRIL [Concomitant]
  12. EPIVIR [Concomitant]

REACTIONS (1)
  - STOOL ANALYSIS ABNORMAL [None]
